FAERS Safety Report 12246981 (Version 1)
Quarter: 2016Q2

REPORT INFORMATION
  Report Type: Report from Study
  Country: US (occurrence: US)
  Receive Date: 20160407
  Receipt Date: 20160407
  Transmission Date: 20160815
  Serious: Yes (Hospitalization, Other)
  Sender: FDA-Public Use
  Company Number: US-GILEAD-2016-0207331

PATIENT
  Age: 66 Year
  Sex: Male

DRUGS (22)
  1. APAP/CODEINE [Concomitant]
     Active Substance: ACETAMINOPHEN\CODEINE PHOSPHATE
  2. CULTURELLE [Concomitant]
     Active Substance: LACTOBACILLUS RHAMNOSUS
  3. PROAIR HFA [Concomitant]
     Active Substance: ALBUTEROL SULFATE
  4. SPIRIVA [Concomitant]
     Active Substance: TIOTROPIUM BROMIDE MONOHYDRATE
  5. AMBRISENTAN [Suspect]
     Active Substance: AMBRISENTAN
     Indication: PULMONARY HYPERTENSION
     Dosage: 10 MG, QD
     Route: 065
  6. METOPROL XL [Concomitant]
  7. SPIRONOLACTON [Concomitant]
     Active Substance: SPIRONOLACTONE
  8. TORSEMIDE. [Concomitant]
     Active Substance: TORSEMIDE
  9. WARFARIN [Concomitant]
     Active Substance: WARFARIN
  10. ADCIRCA [Suspect]
     Active Substance: TADALAFIL
     Indication: PULMONARY HYPERTENSION
     Dosage: 40 MG, QD
     Route: 065
  11. HYDROCODONE BITARTRATE AND ACETAMINOPHEN [Concomitant]
     Active Substance: ACETAMINOPHEN\HYDROCODONE BITARTRATE
  12. ATORVASTATIN [Concomitant]
     Active Substance: ATORVASTATIN
  13. HYDRALAZINE [Concomitant]
     Active Substance: HYDRALAZINE HYDROCHLORIDE
  14. AMIODARONE [Concomitant]
     Active Substance: AMIODARONE
  15. AMOXICILLIN. [Concomitant]
     Active Substance: AMOXICILLIN
  16. CIPROFLOXACIN. [Concomitant]
     Active Substance: CIPROFLOXACIN
  17. LANTUS [Concomitant]
     Active Substance: INSULIN GLARGINE
  18. QVAR [Concomitant]
     Active Substance: BECLOMETHASONE DIPROPIONATE
  19. SENNA                              /00142201/ [Concomitant]
     Active Substance: SENNA LEAF
  20. ALBUTEROL                          /00139501/ [Concomitant]
     Active Substance: ALBUTEROL
  21. CEFUROXIME. [Concomitant]
     Active Substance: CEFUROXIME
  22. MOMETASONE [Concomitant]
     Active Substance: MOMETASONE

REACTIONS (1)
  - Cardiac failure congestive [Recovered/Resolved]

NARRATIVE: CASE EVENT DATE: 201603
